FAERS Safety Report 24603965 (Version 1)
Quarter: 2024Q4

REPORT INFORMATION
  Report Type: Report from Study
  Country: AU (occurrence: AU)
  Receive Date: 20241111
  Receipt Date: 20241111
  Transmission Date: 20250115
  Serious: Yes (Other)
  Sender: TAKEDA
  Company Number: AU-JNJFOC-20241115148

PATIENT
  Sex: Female

DRUGS (1)
  1. BORTEZOMIB [Suspect]
     Active Substance: BORTEZOMIB
     Indication: Plasma cell myeloma
     Dosage: UNK

REACTIONS (1)
  - Plasma cell myeloma [Unknown]
